FAERS Safety Report 16758131 (Version 5)
Quarter: 2020Q1

REPORT INFORMATION
  Report Type: Spontaneous
  Country: US (occurrence: US)
  Receive Date: 20190830
  Receipt Date: 20200227
  Transmission Date: 20200409
  Serious: Yes (Other)
  Sender: FDA-Public Use
  Company Number: US-009507513-1908USA011324

PATIENT
  Age: 74 Year
  Sex: Male

DRUGS (3)
  1. METFORMIN [Concomitant]
     Active Substance: METFORMIN HYDROCHLORIDE
     Dosage: UNK
  2. LIPITOR [Concomitant]
     Active Substance: ATORVASTATIN CALCIUM
     Dosage: UNK
  3. JANUVIA [Suspect]
     Active Substance: SITAGLIPTIN PHOSPHATE
     Indication: GLYCOSYLATED HAEMOGLOBIN INCREASED
     Dosage: UNK
     Route: 048
     Dates: start: 2018

REACTIONS (3)
  - Weight decreased [Not Recovered/Not Resolved]
  - Lymphoma [Unknown]
  - Malaise [Unknown]
